FAERS Safety Report 6539999-6 (Version None)
Quarter: 2010Q1

REPORT INFORMATION
  Report Type: 
  Country: None (occurrence: None)
  Receive Date: 20100115
  Receipt Date: 20100111
  Transmission Date: 20100710
  Serious: Yes (Death, Other)
  Sender: FDA-Public Use
  Company Number: PHFR2008GB00589

PATIENT
  Sex: Male

DRUGS (7)
  1. CLOZARIL [Suspect]
     Indication: SCHIZOPHRENIA
     Route: 048
     Dates: start: 19980505
  2. CITALOPRAM [Concomitant]
     Indication: DEPRESSION
     Dosage: 20MG / DAY
     Route: 048
  3. PROPRANOLOL [Concomitant]
     Indication: TACHYCARDIA
     Dosage: 80MG/ DAY
     Route: 048
  4. HYOSCINE [Concomitant]
     Indication: SALIVARY HYPERSECRETION
     Dosage: 300 UG, TID
     Route: 048
  5. ESOMEPRAZOLE [Concomitant]
  6. ESCITALOPRAM [Concomitant]
  7. SENNA [Concomitant]
     Indication: CONSTIPATION

REACTIONS (6)
  - DRUG ABUSE [None]
  - EYE SWELLING [None]
  - GLOSSODYNIA [None]
  - MYOCARDIAL INFARCTION [None]
  - SWOLLEN TONGUE [None]
  - TONGUE COATED [None]
